FAERS Safety Report 5774461-X (Version None)
Quarter: 2008Q2

REPORT INFORMATION
  Report Type: 
  Country: None (occurrence: None)
  Receive Date: 20080616
  Receipt Date: 20080604
  Transmission Date: 20081010
  Serious: Yes (Other)
  Sender: FDA-Public Use
  Company Number: US-PFIZER INC-2008048097

PATIENT
  Age: 10 Year
  Sex: Female
  Weight: 50 kg

DRUGS (1)
  1. NEURONTIN [Suspect]
     Indication: HYPERAESTHESIA
     Dates: start: 20080401, end: 20080601

REACTIONS (8)
  - ABNORMAL BEHAVIOUR [None]
  - ARTHRALGIA [None]
  - FEAR [None]
  - HALLUCINATION, VISUAL [None]
  - INCORRECT DOSE ADMINISTERED [None]
  - INSOMNIA [None]
  - PARANOIA [None]
  - SELF INJURIOUS BEHAVIOUR [None]
